FAERS Safety Report 8566094 (Version 2)
Quarter: 2012Q4

REPORT INFORMATION
  Report Type: Report from Study
  Country: BE (occurrence: BE)
  Receive Date: 20120517
  Receipt Date: 20121011
  Transmission Date: 20130627
  Serious: Yes (Hospitalization)
  Sender: FDA-Public Use
  Company Number: BE-AMGEN-BELSP2012004127

PATIENT
  Age: 42 Year
  Sex: Female
  Weight: 68 kg

DRUGS (2)
  1. ETANERCEPT [Suspect]
     Indication: PSORIASIS
     Dosage: 50 mg, qwk
     Route: 058
     Dates: start: 20111014, end: 20120120
  2. CONTRACEPTIVES FOR TOPICAL USE [Concomitant]
     Dosage: UNK

REACTIONS (1)
  - Intervertebral disc protrusion [Recovered/Resolved]
